FAERS Safety Report 8973144 (Version 2)
Quarter: 2013Q1

REPORT INFORMATION
  Report Type: Report from Study
  Country: US (occurrence: US)
  Receive Date: 20121218
  Receipt Date: 20130104
  Transmission Date: 20140127
  Serious: Yes (Hospitalization)
  Sender: FDA-Public Use
  Company Number: US-ACTELION-A-NJ2012-76332

PATIENT
  Age: 71 Year
  Sex: Female

DRUGS (2)
  1. TRACLEER [Suspect]
     Indication: PULMONARY ARTERIAL HYPERTENSION
     Dosage: UNK
     Route: 048
  2. REMODULIN [Concomitant]

REACTIONS (8)
  - Catheter site discharge [Recovering/Resolving]
  - Catheter site haemorrhage [Recovering/Resolving]
  - Catheter site pain [Recovering/Resolving]
  - Influenza [Recovering/Resolving]
  - Lymphadenopathy [Recovering/Resolving]
  - Oropharyngeal pain [Recovering/Resolving]
  - Sneezing [Recovering/Resolving]
  - Productive cough [Recovering/Resolving]
